FAERS Safety Report 14291240 (Version 6)
Quarter: 2018Q1

REPORT INFORMATION
  Report Type: Report from Study
  Country: None (occurrence: US)
  Receive Date: 20171215
  Receipt Date: 20180328
  Transmission Date: 20180509
  Serious: Yes (Hospitalization, Other)
  Sender: FDA-Public Use
  Company Number: US-ABBVIE-17K-163-1980057-00

PATIENT
  Sex: Male
  Weight: 123.49 kg

DRUGS (1)
  1. HUMIRA [Suspect]
     Active Substance: ADALIMUMAB
     Indication: PSORIASIS
     Route: 058
     Dates: start: 2016

REACTIONS (20)
  - Hypotension [Recovered/Resolved]
  - Blood glucose decreased [Not Recovered/Not Resolved]
  - Cholelithiasis [Not Recovered/Not Resolved]
  - Hypovolaemia [Unknown]
  - Rash [Unknown]
  - Hypoglycaemic unconsciousness [Recovered/Resolved]
  - Lumbar spinal stenosis [Not Recovered/Not Resolved]
  - Dehydration [Unknown]
  - Immune thrombocytopenic purpura [Unknown]
  - Spondylitis [Not Recovered/Not Resolved]
  - Blood creatinine increased [Unknown]
  - Hypoacusis [Unknown]
  - Renal disorder [Unknown]
  - Diabetes mellitus [Unknown]
  - Renal impairment [Recovering/Resolving]
  - Gallbladder disorder [Unknown]
  - Psoriasis [Unknown]
  - Cardiac failure congestive [Unknown]
  - Aortic aneurysm [Unknown]
  - Blood glucose decreased [Recovered/Resolved]

NARRATIVE: CASE EVENT DATE: 2017
